FAERS Safety Report 6882982-1 (Version None)
Quarter: 2010Q3

REPORT INFORMATION
  Report Type: 
  Country: None (occurrence: None)
  Receive Date: 20100702
  Receipt Date: 20100409
  Transmission Date: 20110219
  Serious: Yes (Other)
  Sender: FDA-Public Use
  Company Number: 2010046284

PATIENT
  Age: 31 Year
  Sex: Male
  Weight: 63.5 kg

DRUGS (6)
  1. ZOLOFT [Suspect]
     Indication: ANXIETY
     Dosage: 50 MG
     Dates: start: 20100101, end: 20100201
  2. ZOLOFT [Suspect]
     Indication: PANIC ATTACK
     Dosage: 50 MG
     Dates: start: 20100101, end: 20100201
  3. EFFEXOR XR [Suspect]
     Indication: DEPRESSION
     Dosage: 75 MG, 2X/DAY
     Dates: start: 20100301
  4. EFFEXOR XR [Suspect]
     Indication: PANIC DISORDER
     Dosage: 75 MG, 2X/DAY
     Dates: start: 20100301
  5. XANAX [Concomitant]
  6. ATIVAN [Concomitant]

REACTIONS (3)
  - ANXIETY [None]
  - DRUG INEFFECTIVE [None]
  - PANIC DISORDER [None]
